FAERS Safety Report 4775225-6 (Version None)
Quarter: 2005Q3

REPORT INFORMATION
  Report Type: 
  Country: None (occurrence: None)
  Receive Date: 20050921
  Receipt Date: 20041020
  Transmission Date: 20060218
  Serious: Yes (Death, Life-Threatening, Hospitalization, Disabling)
  Sender: FDA-Public Use
  Company Number: US-MERCK-0410USA03146

PATIENT
  Age: 58 Year
  Sex: Male
  Weight: 123 kg

DRUGS (11)
  1. VIOXX [Suspect]
     Indication: ARTHRITIS
     Route: 048
     Dates: start: 20020101, end: 20040714
  2. VIOXX [Suspect]
     Route: 048
     Dates: start: 20040701, end: 20040718
  3. VIOXX [Suspect]
     Indication: MUSCULOSKELETAL PAIN
     Route: 048
     Dates: start: 20020101, end: 20040714
  4. VIOXX [Suspect]
     Route: 048
     Dates: start: 20040701, end: 20040718
  5. COUMADIN [Concomitant]
     Route: 065
  6. LASIX [Concomitant]
     Route: 065
  7. DIGITEK [Concomitant]
     Route: 065
  8. ELAVIL [Concomitant]
     Route: 065
  9. LIPITOR [Concomitant]
     Route: 065
  10. COMBIVENT [Concomitant]
     Route: 065
  11. ADVAIR DISKUS 100/50 [Concomitant]
     Route: 065

REACTIONS (13)
  - ADVERSE EVENT [None]
  - ANTICOAGULANT THERAPY [None]
  - BALANCE DISORDER [None]
  - CARDIAC ARREST [None]
  - DIZZINESS [None]
  - DYSPNOEA [None]
  - EPISTAXIS [None]
  - FATIGUE [None]
  - LUNG DISORDER [None]
  - MYOCARDIAL INFARCTION [None]
  - PULMONARY EMBOLISM [None]
  - PULMONARY HYPERTENSION [None]
  - SYNCOPE [None]
